FAERS Safety Report 18559373 (Version 6)
Quarter: 2024Q1

REPORT INFORMATION
  Report Type: Spontaneous
  Country: US (occurrence: US)
  Receive Date: 20201130
  Receipt Date: 20240220
  Transmission Date: 20240410
  Serious: No
  Sender: FDA-Public Use
  Company Number: US-PFIZER INC-2020467856

PATIENT
  Age: 65 Year
  Sex: Female
  Weight: 81.647 kg

DRUGS (3)
  1. XELJANZ [Suspect]
     Active Substance: TOFACITINIB CITRATE
     Indication: Rheumatoid arthritis
     Dosage: 5 MG, 2X/DAY
     Route: 048
  2. XELJANZ [Suspect]
     Active Substance: TOFACITINIB CITRATE
     Dosage: 5 MG, 1X/DAY
     Route: 048
  3. XELJANZ [Suspect]
     Active Substance: TOFACITINIB CITRATE
     Dosage: DRUG STARTED ABOUT 3 TO 4 YEARS

REACTIONS (4)
  - Memory impairment [Unknown]
  - Restless legs syndrome [Unknown]
  - Fibromyalgia [Unknown]
  - Product prescribing issue [Unknown]
